FAERS Safety Report 5165647-6 (Version None)
Quarter: 2006Q4

REPORT INFORMATION
  Report Type: 
  Country: None (occurrence: None)
  Receive Date: 20061124
  Receipt Date: 20061115
  Transmission Date: 20070319
  Serious: Yes (Other)
  Sender: FDA-Public Use
  Company Number: 2006143044

PATIENT
  Sex: Female

DRUGS (1)
  1. SULFASALAZINE [Suspect]
     Indication: ENTEROCOLITIS HAEMORRHAGIC

REACTIONS (2)
  - ANGINA PECTORIS [None]
  - CARDIAC FAILURE [None]
